FAERS Safety Report 8723726 (Version 2)
Quarter: 2012Q4

REPORT INFORMATION
  Report Type: 
  Country: US (occurrence: US)
  Receive Date: 20120815
  Receipt Date: 20120828
  Transmission Date: 20130627
  Serious: No
  Sender: FDA-Public Use
  Company Number: US-BIOGENIDEC-2012BI029817

PATIENT
  Age: 27 Year
  Sex: Male

DRUGS (2)
  1. AVONEX [Suspect]
     Indication: MULTIPLE SCLEROSIS
     Route: 030
     Dates: start: 20120706, end: 20120727
  2. AVONEX [Suspect]
     Indication: MULTIPLE SCLEROSIS
     Route: 030
     Dates: start: 20120803

REACTIONS (7)
  - Back pain [Recovered/Resolved]
  - Insomnia [Recovered/Resolved]
  - Influenza like illness [Recovered/Resolved]
  - Muscle spasms [Recovered/Resolved]
  - Injection site pain [Not Recovered/Not Resolved]
  - Arthralgia [Recovered/Resolved]
  - Multiple sclerosis relapse [Unknown]
